FAERS Safety Report 6329798-2 (Version None)
Quarter: 2009Q3

REPORT INFORMATION
  Report Type: 
  Country: None (occurrence: None)
  Receive Date: 20090826
  Receipt Date: 20090817
  Transmission Date: 20100115
  Serious: Yes (Other)
  Sender: FDA-Public Use
  Company Number: PHHY2009JP28835

PATIENT
  Sex: Female
  Weight: 33 kg

DRUGS (5)
  1. FEMARA [Suspect]
     Indication: BREAST CANCER
     Dosage: 2.5 MG/DAY
     Route: 048
     Dates: start: 20090508, end: 20090601
  2. GASTER [Concomitant]
     Dosage: 20 MG, UNK
     Route: 048
  3. LASIX [Concomitant]
     Dosage: 20 MG, UNK
     Route: 048
  4. LUVOX [Concomitant]
     Dosage: 25 MG, UNK
     Route: 048
  5. ARIMIDEX [Concomitant]
     Dosage: ON EVERY

REACTIONS (3)
  - BLOOD POTASSIUM DECREASED [None]
  - LEUKOPENIA [None]
  - NEUTROPENIA [None]
